FAERS Safety Report 13720980 (Version 2)
Quarter: 2019Q2

REPORT INFORMATION
  Report Type: Spontaneous
  Country: US (occurrence: US)
  Receive Date: 20170706
  Receipt Date: 20190528
  Transmission Date: 20190711
  Serious: No
  Sender: FDA-Public Use
  Company Number: US-ENDO PHARMACEUTICALS INC-2017-002614

PATIENT
  Age: 18 Year
  Sex: Female

DRUGS (1)
  1. GILDESS 1/20 [Suspect]
     Active Substance: ETHINYL ESTRADIOL\NORETHINDRONE ACETATE
     Indication: CONTRACEPTION
     Dosage: UNK UNKNOWN, UNKNOWN
     Route: 065
     Dates: start: 20160503

REACTIONS (3)
  - Anxiety [Unknown]
  - Emotional disorder [Unknown]
  - Unintended pregnancy [Unknown]

NARRATIVE: CASE EVENT DATE: 201608
